FAERS Safety Report 5714346-8 (Version None)
Quarter: 2008Q2

REPORT INFORMATION
  Report Type: 
  Country: None (occurrence: None)
  Receive Date: 20080423
  Receipt Date: 20080414
  Transmission Date: 20081010
  Serious: Yes (Other)
  Sender: FDA-Public Use
  Company Number: GR-NOVOPROD-274266

PATIENT

DRUGS (7)
  1. LEVEMIR [Suspect]
     Indication: TYPE 2 DIABETES MELLITUS
     Dosage: 40 IU, QD
     Route: 058
     Dates: start: 20060801, end: 20071101
  2. T4 [Concomitant]
     Dosage: 75 MG, QD
     Route: 048
  3. DIAMICRON [Concomitant]
     Dosage: 160 MG X 2
     Route: 048
  4. FISIOTENS [Concomitant]
     Dosage: .3 MG, QD
     Route: 048
  5. SALOSPIR                           /00002701/ [Concomitant]
     Dosage: 100 MG, QD
     Route: 048
  6. KARVEZIDE [Concomitant]
     Route: 048
  7. PACTENS                            /00256201/ [Concomitant]
     Dosage: 10 MG, QD
     Route: 048

REACTIONS (6)
  - ASTHENIA [None]
  - COMPLEX REGIONAL PAIN SYNDROME [None]
  - GASTROOESOPHAGEAL REFLUX DISEASE [None]
  - HEADACHE [None]
  - INSOMNIA [None]
  - RASH GENERALISED [None]
